FAERS Safety Report 8349638-X (Version None)
Quarter: 2012Q2

REPORT INFORMATION
  Report Type: 
  Country: None (occurrence: None)
  Receive Date: 20120510
  Receipt Date: 20120504
  Transmission Date: 20120825
  Serious: Yes (Other)
  Sender: FDA-Public Use
  Company Number: CA-PFIZER INC-2012103493

PATIENT
  Age: 54 Year
  Sex: Female
  Weight: 81.633 kg

DRUGS (7)
  1. ELOCON [Concomitant]
     Dosage: UNK, 2X/DAY AS NEEDED
     Dates: start: 20100108
  2. ISOPTIN SR [Concomitant]
     Dosage: 480 MG, 1X/DAY
     Dates: start: 20030730
  3. HYZAAR [Concomitant]
     Dosage: 100/25 MG, DAILY
     Dates: start: 20030730
  4. TRAMADOL [Concomitant]
     Dosage: 60 MG, 3X/DAY AS NEEDED
     Dates: start: 20100928
  5. ATIVAN [Concomitant]
     Dosage: 1 MG, 1-2 TABS AS NEEDED
     Route: 060
     Dates: start: 20030730
  6. VARENICLINE TARTRATE [Suspect]
     Indication: SMOKING CESSATION THERAPY
     Dosage: 1 MG, 2X/DAY
     Route: 048
     Dates: start: 20101201, end: 20110401
  7. PRILOSEC [Concomitant]
     Dosage: 20 MG, 1X/DAY-2X/DAY
     Dates: start: 20030903

REACTIONS (1)
  - SUPRAVENTRICULAR TACHYCARDIA [None]
